FAERS Safety Report 11352498 (Version 1)
Quarter: 2015Q3

REPORT INFORMATION
  Report Type: Spontaneous
  Country: US (occurrence: US)
  Receive Date: 20150807
  Receipt Date: 20150807
  Transmission Date: 20151125
  Serious: No
  Sender: FDA-Public Use
  Company Number: US-JNJFOC-20140802467

PATIENT
  Age: 53 Year
  Sex: Male
  Weight: 65.77 kg

DRUGS (1)
  1. MENS ROGAINE EXTRA STRENGTH [Suspect]
     Active Substance: MINOXIDIL
     Indication: HAIR GROWTH ABNORMAL
     Dosage: 1/2 CAPFUL
     Route: 061
     Dates: end: 20140729

REACTIONS (2)
  - Dermatitis contact [Not Recovered/Not Resolved]
  - Product formulation issue [Unknown]
